FAERS Safety Report 6582595-5 (Version None)
Quarter: 2010Q1

REPORT INFORMATION
  Report Type: 
  Country: None (occurrence: None)
  Receive Date: 20100212
  Receipt Date: 20100212
  Transmission Date: 20100710
  Serious: Yes (Hospitalization)
  Sender: FDA-Public Use
  Company Number: None

PATIENT
  Age: 49 Year
  Sex: Male
  Weight: 95.9 kg

DRUGS (1)
  1. OMNIPAQUE 140 [Suspect]
     Indication: ANGIOGRAM
     Dosage: 125 ML ONCE IV
     Route: 042
     Dates: start: 20100115, end: 20100115

REACTIONS (5)
  - FLUSHING [None]
  - INCOHERENT [None]
  - LETHARGY [None]
  - NAUSEA [None]
  - VOMITING [None]
